FAERS Safety Report 8430983-4 (Version None)
Quarter: 2012Q2

REPORT INFORMATION
  Report Type: 
  Country: None (occurrence: None)
  Receive Date: 20120612
  Receipt Date: 20120530
  Transmission Date: 20120825
  Serious: Yes (Other)
  Sender: FDA-Public Use
  Company Number: FR-MYLANLABS-2012S1011362

PATIENT
  Age: 58 Year
  Sex: Female

DRUGS (8)
  1. ATORVASTATIN CALCIUM [Suspect]
     Route: 065
  2. SIROLIMUS [Interacting]
     Indication: IMMUNOSUPPRESSION
     Dosage: DOSAGE ADJUSTED AT 1MG STEPS TO ACHIEVE THERAPEUTIC DRUG LEVELS (6-10 MICROG/L)
     Route: 065
     Dates: start: 20021001, end: 20070801
  3. DARBEPOETIN ALFA [Concomitant]
     Route: 065
  4. LOSARTAN [Concomitant]
     Route: 065
  5. TROXERUTIN [Concomitant]
     Route: 065
  6. OMEPRAZOLE [Concomitant]
     Route: 065
  7. AZATHIOPRINE [Concomitant]
     Indication: IMMUNOSUPPRESSION
     Route: 065
  8. FUROSEMIDE [Concomitant]
     Route: 065

REACTIONS (2)
  - DRUG INTERACTION [None]
  - PNEUMONITIS [None]
